FAERS Safety Report 6705757-2 (Version None)
Quarter: 2010Q2

REPORT INFORMATION
  Report Type: 
  Country: None (occurrence: None)
  Receive Date: 20100503
  Receipt Date: 20080922
  Transmission Date: 20101027
  Serious: Yes (Other)
  Sender: FDA-Public Use
  Company Number: VE-BAYER-200818150LA

PATIENT
  Age: 22 Year
  Sex: Female

DRUGS (2)
  1. YASMIN [Suspect]
     Indication: ORAL CONTRACEPTION
     Route: 048
     Dates: start: 20080704, end: 20080804
  2. MISOPROSTOL [Suspect]
     Indication: ABORTION INDUCED
     Route: 048
     Dates: start: 20080901, end: 20080901

REACTIONS (2)
  - ABORTION INDUCED INCOMPLETE [None]
  - PREGNANCY [None]
